FAERS Safety Report 9702022 (Version 1)
Quarter: 2013Q4

REPORT INFORMATION
  Report Type: Spontaneous
  Country: US (occurrence: US)
  Receive Date: 20131121
  Receipt Date: 20131121
  Transmission Date: 20140711
  Serious: No
  Sender: FDA-Public Use
  Company Number: US-009507513-1311USA008160

PATIENT
  Sex: Female

DRUGS (1)
  1. AFRIN NO DRIP SEVERE CONGESTION [Suspect]
     Indication: NASAL CONGESTION
     Dosage: UNK, UNKNOWN
     Route: 045
     Dates: start: 20131105

REACTIONS (1)
  - Drug ineffective [Unknown]
